FAERS Safety Report 21733298 (Version 2)
Quarter: 2022Q4

REPORT INFORMATION
  Report Type: Spontaneous
  Country: GB (occurrence: GB)
  Receive Date: 20221215
  Receipt Date: 20221226
  Transmission Date: 20230113
  Serious: Yes (Life-Threatening, Hospitalization, Other)
  Sender: FDA-Public Use
  Company Number: GB-MHRA-MED-202211301311222290-JQNMW

PATIENT

DRUGS (9)
  1. PREDNISOLONE [Suspect]
     Active Substance: PREDNISOLONE
     Indication: Dyspnoea
     Dosage: 30 MG, QD (1ST COURSE 30MG DAILY FOR 7 DAYS , (TABLET)
     Route: 048
     Dates: start: 20221102
  2. PREDNISOLONE [Suspect]
     Active Substance: PREDNISOLONE
     Indication: Pneumonia
     Dosage: 30 MG, QD (2ND COURSE 30MG DAILY FOR 5 DAYS. 2ND COURSE COMMENCED 2 DAYS ...) )
     Dates: start: 20221110
  3. RIVAROXABAN [Suspect]
     Active Substance: RIVAROXABAN
     Indication: Atrial fibrillation
     Dosage: 15 MG, QD
     Dates: end: 20221117
  4. CALCIUM CARBONATE\CHOLECALCIFEROL [Concomitant]
     Active Substance: CALCIUM CARBONATE\CHOLECALCIFEROL
     Dosage: UNK
  5. ADIZEM [Concomitant]
     Active Substance: DILTIAZEM HYDROCHLORIDE
     Indication: Hypertension
     Dosage: UNK
  6. LEVOTHYROXINE [Concomitant]
     Active Substance: LEVOTHYROXINE
     Indication: Hypothyroidism
     Dosage: UNK
  7. DOXYCYCLINE [Concomitant]
     Active Substance: DOXYCYCLINE
     Indication: Dyspnoea
     Dosage: 100 MG FOR 7 DAYS
     Dates: start: 20221108
  8. AMOXICILLIN [Concomitant]
     Active Substance: AMOXICILLIN
     Indication: Pneumonia
     Dosage: 1 G, TID
     Route: 042
     Dates: start: 20221109
  9. AMOXICILLIN [Concomitant]
     Active Substance: AMOXICILLIN
     Indication: Pneumonia
     Dosage: 1 G, TID
     Route: 048
     Dates: start: 20221110

REACTIONS (4)
  - Abdominal wall haematoma [Recovered/Resolved]
  - Abdominal pain [Unknown]
  - Abdominal distension [Unknown]
  - Drug ineffective [Unknown]

NARRATIVE: CASE EVENT DATE: 20221116
